FAERS Safety Report 12777926 (Version 1)
Quarter: 2016Q3

REPORT INFORMATION
  Report Type: Spontaneous
  Country: US (occurrence: US)
  Receive Date: 20160924
  Receipt Date: 20160924
  Transmission Date: 20161109
  Serious: No
  Sender: FDA-Public Use
  Company Number: US-JAZZ-2016-US-010933

PATIENT
  Sex: Female
  Weight: 76.19 kg

DRUGS (42)
  1. TRIAMCINOLONE [Concomitant]
     Active Substance: TRIAMCINOLONE
  2. XYREM [Suspect]
     Active Substance: SODIUM OXYBATE
     Dosage: 4.5 G, BID
     Route: 048
     Dates: start: 201311
  3. IMIPRAMINE HCL [Concomitant]
     Active Substance: IMIPRAMINE HYDROCHLORIDE
  4. CYCLOPHOSPHAMIDE. [Concomitant]
     Active Substance: CYCLOPHOSPHAMIDE
  5. JANUVIA [Concomitant]
     Active Substance: SITAGLIPTIN PHOSPHATE
  6. NOVOLOG [Concomitant]
     Active Substance: INSULIN ASPART
  7. OXYCODONE HCL IR [Concomitant]
  8. ADVIL [Concomitant]
     Active Substance: IBUPROFEN
  9. LETROZOLE. [Concomitant]
     Active Substance: LETROZOLE
  10. HYDROCHLOROTHIAZIDE. [Concomitant]
     Active Substance: HYDROCHLOROTHIAZIDE
  11. REQUIP [Concomitant]
     Active Substance: ROPINIROLE HYDROCHLORIDE
  12. FLEXERIL [Concomitant]
     Active Substance: CYCLOBENZAPRINE HYDROCHLORIDE
  13. LIPITOR [Concomitant]
     Active Substance: ATORVASTATIN CALCIUM
  14. TRAMADOL HCL [Concomitant]
     Active Substance: TRAMADOL HYDROCHLORIDE
  15. PACLITAXEL. [Concomitant]
     Active Substance: PACLITAXEL
  16. VITAMIN D [Concomitant]
     Active Substance: CHOLECALCIFEROL
  17. FLONASE [Concomitant]
     Active Substance: FLUTICASONE PROPIONATE
  18. DULOXETINE HYDROCHLORIDE. [Concomitant]
     Active Substance: DULOXETINE HYDROCHLORIDE
  19. ARICEPT [Concomitant]
     Active Substance: DONEPEZIL HYDROCHLORIDE
  20. ENALAPRIL MALEATE. [Concomitant]
     Active Substance: ENALAPRIL MALEATE
  21. GABAPENTIN. [Concomitant]
     Active Substance: GABAPENTIN
  22. HYDROXYCHLOROQUINE [Concomitant]
     Active Substance: HYDROXYCHLOROQUINE
  23. LANTUS [Concomitant]
     Active Substance: INSULIN GLARGINE
  24. SIMVASTATIN. [Concomitant]
     Active Substance: SIMVASTATIN
  25. ASPIRIN. [Concomitant]
     Active Substance: ASPIRIN
  26. ATENOLOL. [Concomitant]
     Active Substance: ATENOLOL
  27. GLYBURIDE. [Concomitant]
     Active Substance: GLYBURIDE
  28. XYREM [Suspect]
     Active Substance: SODIUM OXYBATE
     Indication: CATAPLEXY
     Dosage: DOSE ADJUSTMENTS
     Route: 048
     Dates: start: 200611, end: 201212
  29. METHYLPHENIDATE. [Concomitant]
     Active Substance: METHYLPHENIDATE
  30. METHOTREXATE. [Concomitant]
     Active Substance: METHOTREXATE
  31. METOPROLOL SUCCINATE ER [Concomitant]
     Active Substance: METOPROLOL SUCCINATE
  32. ANASTROZOLE. [Concomitant]
     Active Substance: ANASTROZOLE
  33. METFORMIN HCL [Concomitant]
     Active Substance: METFORMIN HYDROCHLORIDE
  34. XYREM [Suspect]
     Active Substance: SODIUM OXYBATE
     Indication: NARCOLEPSY
     Dosage: 2.25 G, BID
     Route: 048
     Dates: start: 200610, end: 200611
  35. XYREM [Suspect]
     Active Substance: SODIUM OXYBATE
     Indication: SOMNOLENCE
     Dosage: 4.5 G, BID
     Route: 048
     Dates: start: 201212, end: 2013
  36. PREDNISONE. [Concomitant]
     Active Substance: PREDNISONE
  37. METHYLPHENIDATE ER [Concomitant]
     Active Substance: METHYLPHENIDATE
  38. ADRIAMYCIN [Concomitant]
     Active Substance: DOXORUBICIN HYDROCHLORIDE
  39. DEMADEX [Concomitant]
     Active Substance: TORSEMIDE
  40. RANITIDINE. [Concomitant]
     Active Substance: RANITIDINE
  41. TRICOR [Concomitant]
     Active Substance: FENOFIBRATE
  42. MULTIVITAMIN [Concomitant]
     Active Substance: VITAMINS

REACTIONS (3)
  - Pseudodementia [Recovering/Resolving]
  - Unevaluable event [Not Recovered/Not Resolved]
  - Injury [Unknown]
